FAERS Safety Report 14873002 (Version 3)
Quarter: 2018Q2

REPORT INFORMATION
  Report Type: Report from Study
  Country: DE (occurrence: DE)
  Receive Date: 20180510
  Receipt Date: 20180626
  Transmission Date: 20180711
  Serious: Yes (Hospitalization)
  Sender: FDA-Public Use
  Company Number: DE-ROCHE-2076067

PATIENT
  Sex: Female

DRUGS (34)
  1. RITUXIMAB. [Suspect]
     Active Substance: RITUXIMAB
     Indication: B-CELL LYMPHOMA
     Route: 042
     Dates: start: 20180130, end: 20180213
  2. PEGFILGRASTIM [Suspect]
     Active Substance: PEGFILGRASTIM
     Route: 058
     Dates: start: 20180428
  3. DOXORUBICINE [Suspect]
     Active Substance: DOXORUBICIN
     Route: 042
     Dates: start: 20180309, end: 20180309
  4. PREDNISONE. [Suspect]
     Active Substance: PREDNISONE
     Indication: B-CELL LYMPHOMA
     Route: 048
     Dates: start: 20180213, end: 20180213
  5. BISOPROLOL [Concomitant]
     Active Substance: BISOPROLOL
     Indication: TACHYCARDIA
     Route: 065
     Dates: start: 20180213, end: 20180214
  6. NYSTATIN. [Concomitant]
     Active Substance: NYSTATIN
     Dosage: 3X/D, MOUTH WASH
     Route: 065
     Dates: start: 20180123
  7. FLUCONAZOLE. [Concomitant]
     Active Substance: FLUCONAZOLE
     Route: 065
     Dates: start: 20180301, end: 20180305
  8. PANTOPRAZOL NATRIUM [Concomitant]
     Active Substance: PANTOPRAZOLE SODIUM
     Route: 048
     Dates: start: 20180213, end: 20180322
  9. CYCLOPHOSPHAMIDE. [Suspect]
     Active Substance: CYCLOPHOSPHAMIDE
     Indication: B-CELL LYMPHOMA
     Route: 042
     Dates: start: 20180131, end: 20180131
  10. DOXORUBICINE [Suspect]
     Active Substance: DOXORUBICIN
     Indication: B-CELL LYMPHOMA
     Route: 042
     Dates: start: 20180131, end: 20180131
  11. METOCLOPRAMIDE. [Concomitant]
     Active Substance: METOCLOPRAMIDE
     Route: 065
     Dates: start: 20180228, end: 20180306
  12. CYCLOPHOSPHAMIDE. [Suspect]
     Active Substance: CYCLOPHOSPHAMIDE
     Route: 042
     Dates: start: 20180309, end: 20180309
  13. COLECALCIFEROL [Concomitant]
     Active Substance: CHOLECALCIFEROL
     Indication: VITAMIN D DEFICIENCY
     Dosage: FOR 5 DAYS
     Route: 048
     Dates: start: 20180131
  14. OSELTAMIVIR [Concomitant]
     Active Substance: OSELTAMIVIR
     Route: 065
     Dates: start: 20180219, end: 20180228
  15. DOXORUBICINE [Suspect]
     Active Substance: DOXORUBICIN
     Dosage: 09/MAY/2018, RECENT DOSE
     Route: 042
     Dates: start: 20180426
  16. RITUXIMAB. [Suspect]
     Active Substance: RITUXIMAB
     Route: 042
     Dates: start: 20180308
  17. VINCRISTINE [Suspect]
     Active Substance: VINCRISTINE
     Indication: B-CELL LYMPHOMA
     Route: 042
     Dates: start: 20180131, end: 20180131
  18. DIGOXIN. [Concomitant]
     Active Substance: DIGOXIN
     Route: 065
     Dates: start: 20180219, end: 20180228
  19. AMPHOTERICIN [Concomitant]
     Active Substance: AMPHOTERICIN B
     Dosage: 3 X/D, MOUTH WASH
     Route: 065
     Dates: start: 20180123
  20. TILIDIN [Concomitant]
     Active Substance: NALOXONE HYDROCHLORIDE\TILIDINE HYDROCHLORIDE
     Indication: HYPOKALAEMIA
     Dosage: 50/4 MG
     Route: 065
     Dates: start: 20180301
  21. RITUXIMAB. [Suspect]
     Active Substance: RITUXIMAB
     Dosage: 08/MAY/2018, RECENT DOSE
     Route: 042
     Dates: start: 20180425, end: 20180425
  22. MACROGOL [Concomitant]
     Active Substance: POLYETHYLENE GLYCOLS
     Indication: CONSTIPATION
     Route: 065
     Dates: start: 20180210
  23. ENOXAPARIN SODIUM. [Concomitant]
     Active Substance: ENOXAPARIN SODIUM
     Route: 065
  24. VANCOMYCIN [Concomitant]
     Active Substance: VANCOMYCIN
     Route: 065
     Dates: start: 20180217, end: 20180227
  25. PEGFILGRASTIM [Suspect]
     Active Substance: PEGFILGRASTIM
     Indication: B-CELL LYMPHOMA
     Route: 058
     Dates: start: 20180202, end: 20180202
  26. CYCLOPHOSPHAMIDE. [Suspect]
     Active Substance: CYCLOPHOSPHAMIDE
     Route: 042
     Dates: start: 20180426, end: 20180426
  27. VINCRISTINE [Suspect]
     Active Substance: VINCRISTINE
     Dosage: 15/MAY/2018, RECENT DOSE 2.62MG ONCE A DAY
     Route: 042
     Dates: start: 20180503, end: 20180503
  28. PREDNISONE. [Suspect]
     Active Substance: PREDNISONE
     Route: 048
     Dates: start: 20180425, end: 20180429
  29. ENOXAPARIN SODIUM. [Concomitant]
     Active Substance: ENOXAPARIN SODIUM
     Route: 065
  30. NATRIUMPICOSULFAT [Concomitant]
     Dosage: 15 DROPS
     Route: 048
     Dates: start: 20180213, end: 20180217
  31. COLECALCIFEROL [Concomitant]
     Active Substance: CHOLECALCIFEROL
     Dosage: 2-0-0 ON THURSDAY
     Route: 048
  32. ACICLOVIR [Concomitant]
     Active Substance: ACYCLOVIR
     Route: 065
     Dates: start: 20180131
  33. CIPROFLOXACIN. [Concomitant]
     Active Substance: CIPROFLOXACIN
     Route: 065
     Dates: start: 20180131
  34. TRIMETHOPRIM + SULFA [Concomitant]
     Route: 065
     Dates: start: 20180131

REACTIONS (3)
  - Infection [Recovered/Resolved]
  - General physical health deterioration [Recovered/Resolved]
  - General physical health deterioration [Not Recovered/Not Resolved]

NARRATIVE: CASE EVENT DATE: 20180214
